FAERS Safety Report 20602749 (Version 1)
Quarter: 2022Q1

REPORT INFORMATION
  Report Type: Spontaneous
  Country: CN (occurrence: CN)
  Receive Date: 20220316
  Receipt Date: 20220316
  Transmission Date: 20220423
  Serious: Yes (Disabling)
  Sender: FDA-Public Use
  Company Number: CN-PFIZER INC-202200390343

PATIENT
  Age: 67 Year
  Sex: Female

DRUGS (2)
  1. METHOTREXATE [Suspect]
     Active Substance: METHOTREXATE
     Indication: Therapeutic procedure
     Dosage: 3 G, 1X/DAY
     Route: 041
     Dates: start: 20220210, end: 20220211
  2. SODIUM CHLORIDE [Concomitant]
     Active Substance: SODIUM CHLORIDE
     Indication: Vehicle solution use
     Dosage: 100 ML, 1X/DAY
     Route: 041
     Dates: start: 20220210, end: 20220211

REACTIONS (4)
  - Granulocyte count decreased [Recovering/Resolving]
  - White blood cell count decreased [Recovering/Resolving]
  - Mouth ulceration [Recovering/Resolving]
  - Anaemia [Recovering/Resolving]

NARRATIVE: CASE EVENT DATE: 20220214
